FAERS Safety Report 9166371 (Version 1)
Quarter: 2013Q1

REPORT INFORMATION
  Report Type: Spontaneous
  Country: GB (occurrence: GB)
  Receive Date: 20130315
  Receipt Date: 20130315
  Transmission Date: 20140127
  Serious: Yes (Hospitalization)
  Sender: FDA-Public Use
  Company Number: PHFR2013GB001580

PATIENT
  Age: 62 Year
  Sex: Female

DRUGS (11)
  1. IMATINIB [Suspect]
     Indication: CHRONIC MYELOID LEUKAEMIA
     Dosage: 400 MG, PER DAY
     Dates: end: 20121205
  2. ADENURIC [Suspect]
     Indication: GOUT
     Dosage: 40 MG, PER DAY
     Route: 048
     Dates: start: 201208, end: 20121125
  3. ACYCLOVIR [Concomitant]
     Indication: CORNEAL TRANSPLANT
     Dosage: 200 MG, PER DAY
  4. FUROSEMIDE [Concomitant]
     Dosage: 40 MG, PER DAY
  5. OMEPRAZOLE [Concomitant]
     Indication: PROPHYLAXIS AGAINST GASTROINTESTINAL ULCER
     Dosage: 20 MG, PER DAY
  6. VANCOMYCIN [Concomitant]
     Indication: CLOSTRIDIAL INFECTION
     Dosage: 500 MG, DAY
  7. IBUPROFEN [Concomitant]
     Indication: GOUT
     Dosage: 1200 MG, PER DAY
  8. PARACETAMOL [Concomitant]
     Indication: PAIN
     Dosage: 4 G, PER DAY
  9. WARFARIN [Concomitant]
     Indication: DEEP VEIN THROMBOSIS
     Dosage: UNK UKN, UNK
  10. DEXAMETHASONE [Concomitant]
     Indication: CORNEAL TRANSPLANT
     Dosage: 0.1 %, UNK
     Route: 047
  11. CYCLOPENTOLATE [Concomitant]
     Indication: CORNEAL TRANSPLANT
     Dosage: 1 %, UNK
     Route: 048

REACTIONS (5)
  - Clostridium difficile infection [Recovered/Resolved]
  - Renal failure acute [Recovered/Resolved]
  - Glomerular filtration rate decreased [Recovered/Resolved]
  - Cough [Recovered/Resolved]
  - Nausea [Recovered/Resolved]
